FAERS Safety Report 6297368-0 (Version None)
Quarter: 2009Q3

REPORT INFORMATION
  Report Type: 
  Country: None (occurrence: None)
  Receive Date: 20090805
  Receipt Date: 20090612
  Transmission Date: 20100115
  Serious: Yes (Hospitalization)
  Sender: FDA-Public Use
  Company Number: US-NAPPMUNDI-USA-2009-0039076

PATIENT
  Sex: Female

DRUGS (1)
  1. OXYCONTIN [Suspect]
     Indication: ANALGESIA
     Dosage: 40 MG, PRN
     Route: 048
     Dates: start: 20000913, end: 20030908

REACTIONS (3)
  - LOSS OF CONSCIOUSNESS [None]
  - MENTAL DISORDER [None]
  - ROAD TRAFFIC ACCIDENT [None]
